FAERS Safety Report 11451797 (Version 1)
Quarter: 2015Q3

REPORT INFORMATION
  Report Type: Spontaneous
  Country: US (occurrence: None)
  Receive Date: 20150902
  Receipt Date: 20150902
  Transmission Date: 20151125
  Serious: Yes (Other)
  Sender: FDA-Public Use
  Company Number: None

PATIENT
  Age: 57 Year
  Sex: Female

DRUGS (1)
  1. OTEZLA [Suspect]
     Active Substance: APREMILAST
     Route: 048
     Dates: start: 20150423

REACTIONS (3)
  - Gastrooesophageal reflux disease [None]
  - Abscess [None]
  - Drug ineffective [None]

NARRATIVE: CASE EVENT DATE: 20150715
